FAERS Safety Report 6934690-6 (Version None)
Quarter: 2010Q3

REPORT INFORMATION
  Report Type: 
  Country: None (occurrence: None)
  Receive Date: 20100820
  Receipt Date: 20100811
  Transmission Date: 20110219
  Serious: Yes (Other)
  Sender: FDA-Public Use
  Company Number: US-ALLERGAN-1010419US

PATIENT
  Age: 77 Year
  Sex: Female

DRUGS (2)
  1. RESTASIS [Suspect]
     Indication: DRY EYE
     Dosage: 1 GTT, BID
     Route: 047
  2. NASONEX [Concomitant]
     Route: 061

REACTIONS (5)
  - DRUG INEFFECTIVE [None]
  - HEARING IMPAIRED [None]
  - MIDDLE EAR EFFUSION [None]
  - PNEUMONIA [None]
  - VITREOUS FLOATERS [None]
